FAERS Safety Report 6368993-3 (Version None)
Quarter: 2009Q3

REPORT INFORMATION
  Report Type: 
  Country: None (occurrence: None)
  Receive Date: 20090922
  Receipt Date: 20090921
  Transmission Date: 20100115
  Serious: Yes (Life-Threatening)
  Sender: FDA-Public Use
  Company Number: US-SANOFI-SYNTHELABO-F01200900872

PATIENT
  Sex: Male

DRUGS (10)
  1. VYTORIN [Concomitant]
     Dosage: UNK
     Route: 065
  2. VITAMIN D [Concomitant]
     Dosage: UNK
     Route: 065
  3. OMEPRAZOLE [Concomitant]
     Dosage: UNK
     Route: 065
  4. GLUTATHIONE [Concomitant]
     Dosage: UNK
     Route: 065
  5. ASPIRIN [Concomitant]
     Dosage: UNK
     Route: 065
  6. AMLODIPINE [Concomitant]
     Dosage: UNK
     Route: 065
  7. RADIOTHERAPY [Concomitant]
     Dosage: 3960 CGY AS 180 CGY DAILY X 22 TREATMENTS
     Dates: start: 20070129, end: 20070301
  8. RADIOTHERAPY [Concomitant]
     Dosage: 1080CGY AS 180CGY DAILY X 6 TREATMENTS
     Dates: start: 20070302, end: 20070309
  9. CAPECITABINE [Suspect]
     Indication: OESOPHAGEAL ADENOCARCINOMA
     Dosage: 20 DAYS, M-F 625 MG/M2
     Route: 048
     Dates: start: 20070129, end: 20070309
  10. OXALIPLATIN [Suspect]
     Indication: OESOPHAGEAL ADENOCARCINOMA
     Dosage: D1, D15, D29 185 MG/M2
     Route: 041
     Dates: start: 20070226, end: 20070226

REACTIONS (4)
  - ACUTE MYELOID LEUKAEMIA [None]
  - ANASTOMOTIC LEAK [None]
  - OESOPHAGEAL FISTULA [None]
  - WOUND INFECTION [None]
